FAERS Safety Report 4303402-7 (Version None)
Quarter: 2004Q1

REPORT INFORMATION
  Report Type: 
  Country: None (occurrence: None)
  Receive Date: 20040220
  Receipt Date: 20040210
  Transmission Date: 20041129
  Serious: Yes (Death)
  Sender: FDA-Public Use
  Company Number: HQWYE968413FEB04

PATIENT

DRUGS (1)
  1. MINOCYCLINE HCL [Suspect]
     Dosage: INTRAVENOUS DRIP
     Route: 041

REACTIONS (1)
  - MYOCARDIAL INFARCTION [None]
